FAERS Safety Report 20846620 (Version 2)
Quarter: 2022Q2

REPORT INFORMATION
  Report Type: Report from Study
  Country: FR (occurrence: FR)
  Receive Date: 20220518
  Receipt Date: 20220531
  Transmission Date: 20220721
  Serious: Yes (Other)
  Sender: FDA-Public Use
  Company Number: FR-AMGEN-FRANI2022084032

PATIENT
  Age: 53 Year
  Sex: Female

DRUGS (2)
  1. AMG-510 [Suspect]
     Active Substance: AMG-510
     Indication: Non-small cell lung cancer metastatic
     Dosage: 960 MILLIGRAM, QD
     Route: 048
  2. AMG-510 [Suspect]
     Active Substance: AMG-510
     Indication: K-ras gene mutation
     Dosage: 240 MILLIGRAM, QD
     Route: 048

REACTIONS (1)
  - Hepatic cytolysis [Recovered/Resolved]

NARRATIVE: CASE EVENT DATE: 20211004
